FAERS Safety Report 4713040-X (Version None)
Quarter: 2005Q3

REPORT INFORMATION
  Report Type: 
  Country: None (occurrence: None)
  Receive Date: 20050713
  Receipt Date: 20050629
  Transmission Date: 20060218
  Serious: Yes (Death)
  Sender: FDA-Public Use
  Company Number: GBWYE784829JUN05

PATIENT
  Sex: Male

DRUGS (1)
  1. ENBREL [Suspect]
     Indication: PSORIASIS
     Dosage: 25-50MG TWICE WEEKLY
     Dates: start: 20040716

REACTIONS (2)
  - ADVERSE DRUG REACTION [None]
  - SUDDEN DEATH [None]
